FAERS Safety Report 4498436-6 (Version None)
Quarter: 2004Q4

REPORT INFORMATION
  Report Type: 
  Country: None (occurrence: None)
  Receive Date: 20041105
  Receipt Date: 20041029
  Transmission Date: 20050328
  Serious: Yes (Life-Threatening, Hospitalization)
  Sender: FDA-Public Use
  Company Number: 2004AC00666

PATIENT
  Age: 38 Year
  Sex: Male
  Weight: 113 kg

DRUGS (8)
  1. SEROQUEL [Suspect]
     Indication: SCHIZOPHRENIA
     Dosage: 1100 MG DAILY PO
     Route: 048
     Dates: start: 20040318, end: 20040914
  2. SEROQUEL [Suspect]
     Indication: SCHIZOPHRENIA
     Dosage: 600 MG DAILY PO
     Route: 048
     Dates: start: 20040915, end: 20041013
  3. STAURODORM [Concomitant]
  4. ETUMINE [Concomitant]
  5. INDERAL [Concomitant]
  6. XALATAN [Concomitant]
  7. TIMOPTIC [Concomitant]
  8. ALDACTAZINE [Concomitant]

REACTIONS (6)
  - BRONCHOPNEUMONIA [None]
  - DIABETIC COMA [None]
  - DIABETIC KETOACIDOSIS [None]
  - PANCREATITIS [None]
  - UPPER RESPIRATORY TRACT INFECTION [None]
  - WEIGHT INCREASED [None]
